FAERS Safety Report 24225361 (Version 2)
Quarter: 2024Q4

REPORT INFORMATION
  Report Type: Spontaneous
  Country: US (occurrence: US)
  Receive Date: 20240820
  Receipt Date: 20241107
  Transmission Date: 20250114
  Serious: No
  Sender: Vantive US Healthcare
  Company Number: US-VANTIVE-2024VAN019085

PATIENT
  Age: 72 Year
  Sex: Male

DRUGS (1)
  1. EXTRANEAL [Suspect]
     Active Substance: CALCIUM CHLORIDE\ICODEXTRIN\MAGNESIUM CHLORIDE\SODIUM CHLORIDE\SODIUM LACTATE
     Dosage: UNK
     Route: 033
     Dates: end: 20240930

REACTIONS (4)
  - Increased intraperitoneal volume [Unknown]
  - Fluid retention [Unknown]
  - Abdominal distension [Unknown]
  - Dyspnoea [Recovered/Resolved]

NARRATIVE: CASE EVENT DATE: 20240527
